FAERS Safety Report 5616185-5 (Version None)
Quarter: 2008Q1

REPORT INFORMATION
  Report Type: 
  Country: None (occurrence: None)
  Receive Date: 20080201
  Receipt Date: 20080122
  Transmission Date: 20080703
  Serious: Yes (Other)
  Sender: FDA-Public Use
  Company Number: 2008BI001880

PATIENT
  Age: 34 Year
  Sex: Female

DRUGS (2)
  1. TYSABRI [Suspect]
     Indication: MULTIPLE SCLEROSIS
     Dosage: 300 MG; QM; IV
     Route: 042
     Dates: start: 20071001
  2. AVONEX [Concomitant]

REACTIONS (6)
  - CHEST DISCOMFORT [None]
  - CONVULSION [None]
  - FLUSHING [None]
  - HYPERSENSITIVITY [None]
  - LUNG DISORDER [None]
  - PRURITUS GENERALISED [None]
